FAERS Safety Report 6742535-2 (Version None)
Quarter: 2010Q2

REPORT INFORMATION
  Report Type: 
  Country: None (occurrence: None)
  Receive Date: 20100524
  Receipt Date: 20090416
  Transmission Date: 20101027
  Serious: Yes (Life-Threatening, Hospitalization, Disabling)
  Sender: FDA-Public Use
  Company Number: 2009BH006243

PATIENT
  Sex: Female

DRUGS (12)
  1. CYTOXAN [Suspect]
     Indication: BREAST CANCER
     Dosage: 1224 MG; IV; 1000 MG; IV
     Route: 042
     Dates: start: 20090402, end: 20090402
  2. CYTOXAN [Suspect]
     Indication: BREAST CANCER
     Dosage: 1224 MG; IV; 1000 MG; IV
     Route: 042
     Dates: start: 20090423, end: 20090423
  3. CYTOXAN [Suspect]
     Indication: BREAST CANCER
     Dosage: 1224 MG; IV; 1000 MG; IV
     Route: 042
     Dates: start: 20090515, end: 20090515
  4. DOXORUBICIN HCL [Suspect]
     Indication: BREAST CANCER
     Dosage: 122 MG; IV
     Route: 042
     Dates: start: 20090402, end: 20090402
  5. DOXORUBICIN HCL [Suspect]
     Indication: BREAST CANCER
     Dosage: 122 MG; IV
     Route: 042
     Dates: start: 20090423, end: 20090423
  6. COMPAZINE [Concomitant]
  7. ATIVAN [Concomitant]
  8. AMBIEN [Concomitant]
  9. DIAZEPAM [Concomitant]
  10. FLEXERIL [Concomitant]
  11. MOUTHWASH [Concomitant]
  12. FLUCONAZOLE [Concomitant]

REACTIONS (1)
  - FEBRILE NEUTROPENIA [None]
